FAERS Safety Report 13251518 (Version 3)
Quarter: 2017Q2

REPORT INFORMATION
  Report Type: Spontaneous
  Country: US (occurrence: US)
  Receive Date: 20170220
  Receipt Date: 20170526
  Transmission Date: 20170830
  Serious: Yes (Life-Threatening)
  Sender: FDA-Public Use
  Company Number: US-BEH-2017078172

PATIENT
  Age: 52 Year
  Sex: Male
  Weight: 83 kg

DRUGS (3)
  1. WARFARIN [Concomitant]
     Active Substance: WARFARIN
     Route: 065
  2. KCENTRA [Suspect]
     Active Substance: COAGULATION FACTOR IX HUMAN\COAGULATION FACTOR VII HUMAN\COAGULATION FACTOR X HUMAN\PROTEIN C\PROTEIN S HUMAN\PROTHROMBIN
     Indication: PROCOAGULANT THERAPY
     Dosage: 2088 IU, TOT
     Route: 065
  3. HEPARIN [Concomitant]
     Active Substance: HEPARIN SODIUM
     Route: 065

REACTIONS (4)
  - Vena cava thrombosis [Recovered/Resolved]
  - Acute kidney injury [Recovered/Resolved]
  - Ischaemic hepatitis [Recovered/Resolved]
  - Blood lactic acid increased [Recovered/Resolved]
